FAERS Safety Report 8117785-3 (Version None)
Quarter: 2011Q4

REPORT INFORMATION
  Report Type: 
  Country: None (occurrence: None)
  Receive Date: 20111227
  Receipt Date: 20111024
  Transmission Date: 20120403
  Serious: No
  Sender: FDA-Public Use
  Company Number: PHEH2011US07774

PATIENT
  Age: 27 Year
  Sex: Female
  Weight: 59 kg

DRUGS (6)
  1. AVIANE (ETHINYLESTRADIOL, LEVONORGESTREL) [Concomitant]
  2. GILENYA [Suspect]
     Dosage: 1 DF, QD, ORAL
     Route: 048
  3. VITAMIN D [Concomitant]
  4. VITAMIN B COMPLEX CAP [Concomitant]
  5. CALCIUM WITH VITAMIN D (CALCIUM PHOSPHATE, CALCIUM SODIUM LACTATE, ERG [Concomitant]
  6. CRANBERRY [Concomitant]

REACTIONS (2)
  - HEART RATE DECREASED [None]
  - CHEST DISCOMFORT [None]
